FAERS Safety Report 4731806-7 (Version None)
Quarter: 2005Q3

REPORT INFORMATION
  Report Type: 
  Country: None (occurrence: None)
  Receive Date: 20050802
  Receipt Date: 20050608
  Transmission Date: 20060218
  Serious: Yes (Disabling)
  Sender: FDA-Public Use
  Company Number: PHEH2005US06528

PATIENT
  Age: 32 Year
  Sex: Male
  Weight: 98 kg

DRUGS (1)
  1. LAMISIL [Suspect]
     Indication: NAIL TINEA
     Dosage: 250 MG, QD
     Route: 048
     Dates: start: 20030901, end: 20031201

REACTIONS (14)
  - CONTUSION [None]
  - COUGH [None]
  - DIZZINESS [None]
  - DYSURIA [None]
  - EPISTAXIS [None]
  - MUCOSAL EROSION [None]
  - MUCOSAL INFLAMMATION [None]
  - OROPHARYNGEAL SWELLING [None]
  - PETECHIAE [None]
  - PHARYNGOLARYNGEAL PAIN [None]
  - PLATELET COUNT DECREASED [None]
  - PYREXIA [None]
  - THROMBOCYTOPENIC PURPURA [None]
  - VIRAL INFECTION [None]
